FAERS Safety Report 10277723 (Version 1)
Quarter: 2014Q3

REPORT INFORMATION
  Report Type: Spontaneous
  Country: US (occurrence: US)
  Receive Date: 20140704
  Receipt Date: 20140704
  Transmission Date: 20150326
  Serious: Yes (Other)
  Sender: FDA-Public Use
  Company Number: US-JNJCP-30000226515

PATIENT
  Sex: Female
  Weight: 79 kg

DRUGS (1)
  1. NEUTROGENA ULTRA SHEER DRY TOUCH SPF55 [Suspect]
     Active Substance: AVOBENZONE\HOMOSALATE\OCTISALATE\OCTOCRYLENE\OXYBENZONE
     Indication: PROPHYLAXIS
     Dosage: APPLIED LIBERALLY, ONE TIME
     Route: 061
     Dates: start: 20140614, end: 20140614

REACTIONS (1)
  - Chemical injury [Not Recovered/Not Resolved]

NARRATIVE: CASE EVENT DATE: 20140614
